FAERS Safety Report 13623940 (Version 1)
Quarter: 2017Q2

REPORT INFORMATION
  Report Type: Spontaneous
  Country: US (occurrence: US)
  Receive Date: 20170608
  Receipt Date: 20170608
  Transmission Date: 20170830
  Serious: Yes (Hospitalization)
  Sender: FDA-Public Use
  Company Number: US-B.I. PHARMACEUTICALS,INC./RIDGEFIELD-2017-BI-031958

PATIENT
  Sex: Female

DRUGS (17)
  1. PANTOPRAZOLE 40 MG TABLET [Concomitant]
     Indication: PRODUCT USED FOR UNKNOWN INDICATION
     Dosage: 2 TIMES A DAY WITH MEALS
     Route: 048
  2. LEVOTHYROXINE 75 MCG TABLET [Concomitant]
     Indication: PRODUCT USED FOR UNKNOWN INDICATION
     Dosage: COMMONLY KNOWN AS SYNTHROID, LEVOTHROID
     Route: 065
  3. NYSTATIN CREAM [Concomitant]
     Active Substance: NYSTATIN
     Indication: PRODUCT USED FOR UNKNOWN INDICATION
     Route: 065
  4. POLYETHYLENE GLYCOL 17 GRAM POWDER [Concomitant]
     Indication: PRODUCT USED FOR UNKNOWN INDICATION
     Route: 048
  5. ONGLYZA 5 MG TAB [Concomitant]
     Indication: PRODUCT USED FOR UNKNOWN INDICATION
     Route: 065
  6. LIDOCAINE 5 ?/O(700 MG/PATCH) [Concomitant]
     Indication: PRODUCT USED FOR UNKNOWN INDICATION
     Dosage: STRENGTH: 5% (700MG/PATCH)?PLACE 1 PATCH ONTO THE SKIN ONE TIME A DAY. APPLY PATCH FOR 12 HOURS THEN
     Route: 065
  7. SILVER SULFADIAZINE 1 ?/O CREAM [Concomitant]
     Indication: PRODUCT USED FOR UNKNOWN INDICATION
     Dosage: STRENGTH: 1% APPLY TO RED AREAS ON ABDOMEN WITH SPECIAL ATTENTION TO THE FLANKS
     Route: 065
  8. NEBIVOLOL 10 MG TABLET [Concomitant]
     Indication: PRODUCT USED FOR UNKNOWN INDICATION
     Route: 065
  9. ESCITALOPRAM 10 MG TABLET [Concomitant]
     Indication: PRODUCT USED FOR UNKNOWN INDICATION
     Route: 065
  10. LISINOPRIL 20 MG TABLET [Concomitant]
     Active Substance: LISINOPRIL
     Indication: PRODUCT USED FOR UNKNOWN INDICATION
     Route: 048
  11. PRADAXA [Suspect]
     Active Substance: DABIGATRAN ETEXILATE MESYLATE
     Indication: ANTICOAGULANT THERAPY
     Route: 048
  12. INSULIN LISPRO 100 UNIT/ML INJECTION [Concomitant]
     Indication: BLOOD GLUCOSE INCREASED
     Dosage: STRENGTH: 100 UNIT/ML INJECTION?INJECT 2-12 UNITS INTO THE SKIN AS NEEDED
     Route: 065
  13. CHLORHEXIDINE 4 ?/O EXTERNAL LIQUID [Concomitant]
     Indication: WOUND
     Dosage: STRENGTH: 4% EXTERNAL LIQUID ?TO OPEN WOUND DAILY
     Route: 065
  14. MAGNESIUM OXIDE 400 MG TABLET [Concomitant]
     Indication: PRODUCT USED FOR UNKNOWN INDICATION
     Route: 048
  15. ZOLPIDEM 5 MG TABLET [Concomitant]
     Indication: SLEEP DISORDER
     Dosage: 1 TABLET AT BEDTIME AS NEEDED
     Route: 048
  16. DILTIAZEM 240 MG 24 HR CAPSULE [Concomitant]
     Indication: PRODUCT USED FOR UNKNOWN INDICATION
     Dosage: 24 HR CAPSULE
     Route: 065
  17. DEXTRAN 70-HYPROMELLOSE OPHTHALMIC SOLUTION [Concomitant]
     Indication: PRODUCT USED FOR UNKNOWN INDICATION
     Dosage: PLACE 2 DROPS INTO BOTH EYES EVERY 2 (TWO) HOURS AS NEEDED.
     Route: 065

REACTIONS (2)
  - Gastrointestinal haemorrhage [Unknown]
  - Anaemia [Unknown]
